FAERS Safety Report 16329121 (Version 1)
Quarter: 2019Q2

REPORT INFORMATION
  Report Type: Spontaneous
  Country: CA (occurrence: CA)
  Receive Date: 20190519
  Receipt Date: 20190519
  Transmission Date: 20190711
  Serious: Yes (Other)
  Sender: FDA-Public Use
  Company Number: CA-COLGATE PALMOLIVE COMPANY-20190501361

PATIENT
  Sex: Male

DRUGS (1)
  1. COLGATE TOTAL CLEAN MINT [Suspect]
     Active Substance: SODIUM FLUORIDE\TRICLOSAN
     Dosage: FILLS BRISTLES WITH TOOTHPASTE, 1-2 TIMES A DAY

REACTIONS (3)
  - Dental caries [Not Recovered/Not Resolved]
  - Cerebrovascular accident [Recovered/Resolved]
  - Tooth abscess [Not Recovered/Not Resolved]

NARRATIVE: CASE EVENT DATE: 2013
